FAERS Safety Report 4895497-7 (Version None)
Quarter: 2006Q1

REPORT INFORMATION
  Report Type: 
  Country: None (occurrence: None)
  Receive Date: 20060125
  Receipt Date: 20060117
  Transmission Date: 20060701
  Serious: Yes (Other)
  Sender: FDA-Public Use
  Company Number: 2005049575

PATIENT
  Age: 60 Year
  Sex: Male

DRUGS (7)
  1. CELEBREX [Suspect]
     Indication: ILL-DEFINED DISORDER
     Dosage: 200 MG (200 MG, 1 IN 1 D), ORAL
     Route: 048
     Dates: end: 20040601
  2. COREG [Concomitant]
  3. LISINOPRIL [Concomitant]
  4. LIPITOR [Concomitant]
  5. RESTORIL [Concomitant]
  6. NITROGLYCERIN [Concomitant]
  7. ACETAMINOPHEN [Concomitant]

REACTIONS (4)
  - CARDIAC DISORDER [None]
  - CORONARY ARTERY DISEASE [None]
  - CORONARY ARTERY OCCLUSION [None]
  - ISCHAEMIC CARDIOMYOPATHY [None]
